FAERS Safety Report 20827611 (Version 1)
Quarter: 2022Q2

REPORT INFORMATION
  Report Type: Spontaneous
  Country: US (occurrence: None)
  Receive Date: 20220513
  Receipt Date: 20220513
  Transmission Date: 20220720
  Serious: Yes (Hospitalization)
  Sender: FDA-Public Use
  Company Number: None

PATIENT
  Age: 83 Year
  Sex: Female
  Weight: 53.07 kg

DRUGS (6)
  1. SUNITINIB [Suspect]
     Active Substance: SUNITINIB
     Indication: Breast cancer
     Dosage: OTHER FREQUENCY : 2W,1WOFF;?
     Route: 048
     Dates: start: 202109
  2. HYDROCODONE-ACETAMINOPHEN [Concomitant]
  3. LORAZEPAM [Concomitant]
  4. LYRICA [Concomitant]
  5. METOPROLOL TARTRATE [Concomitant]
  6. PANTOPRAZOLE SODIUM [Concomitant]

REACTIONS (2)
  - Pneumonia [None]
  - Urinary tract infection [None]
